FAERS Safety Report 4296404-0 (Version None)
Quarter: 2004Q1

REPORT INFORMATION
  Report Type: 
  Country: None (occurrence: None)
  Receive Date: 20040213
  Receipt Date: 20040213
  Transmission Date: 20041129
  Serious: Yes (Other)
  Sender: FDA-Public Use
  Company Number: None

PATIENT
  Age: 45 Year
  Sex: Female
  Weight: 90.7194 kg

DRUGS (1)
  1. CELEXA [Suspect]
     Dosage: 1/2 TABLET DAILY 10D /ORAL
     Route: 048

REACTIONS (10)
  - CRYING [None]
  - DEPRESSION [None]
  - FATIGUE [None]
  - FEELING ABNORMAL [None]
  - FLAT AFFECT [None]
  - HEART RATE INCREASED [None]
  - HYPERSOMNIA [None]
  - HYPOAESTHESIA [None]
  - LOSS OF LIBIDO [None]
  - PARANOIA [None]
